FAERS Safety Report 9734397 (Version 2)
Quarter: 2013Q4

REPORT INFORMATION
  Report Type: Not Available
  Country: CH (occurrence: CH)
  Receive Date: 20131206
  Receipt Date: 20131206
  Transmission Date: 20140711
  Serious: Yes (Other)
  Sender: FDA-Public Use
  Company Number: CH-BEH-2013037124

PATIENT
  Age: 67 Year
  Sex: Female

DRUGS (9)
  1. PRIVIGEN [Suspect]
     Indication: PITYRIASIS LICHENOIDES ET VARIOLIFORMIS ACUTA
     Route: 041
     Dates: start: 20130530, end: 20130531
  2. INSULATARD [Concomitant]
     Indication: TYPE 1 DIABETES MELLITUS
     Dosage: LONG TERM USE
     Route: 058
  3. NOVORAPID [Concomitant]
     Indication: TYPE 1 DIABETES MELLITUS
  4. CITALOPRAM [Concomitant]
     Indication: DEPRESSION
     Dosage: LONG TERM USE
     Route: 048
  5. LYRICA [Concomitant]
     Dosage: LONG TERM USE
     Route: 048
  6. VENLAFAXINE [Concomitant]
     Dosage: LONG TERM USE
     Route: 048
  7. LEXOTANIL [Concomitant]
     Indication: ANXIETY DISORDER
     Route: 048
     Dates: start: 20130527
  8. OXYCONTIN [Concomitant]
     Indication: PAIN
     Dosage: LONG TERM USE (DOSES ENTRE 30 ET 40 MG 2X/J)
     Route: 048
  9. OXYNORM [Concomitant]
     Indication: PAIN
     Dosage: LONG TERM USE
     Route: 048

REACTIONS (2)
  - Leukopenia [Recovered/Resolved]
  - Lymphopenia [Not Recovered/Not Resolved]
